FAERS Safety Report 13107644 (Version 1)
Quarter: 2017Q1

REPORT INFORMATION
  Report Type: Spontaneous
  Country: US (occurrence: US)
  Receive Date: 20170112
  Receipt Date: 20170112
  Transmission Date: 20170428
  Serious: No
  Sender: FDA-Public Use
  Company Number: US-TEVA-723582ACC

PATIENT
  Age: 20 Year
  Sex: Female

DRUGS (1)
  1. PLAN B ONE-STEP [Suspect]
     Active Substance: LEVONORGESTREL
     Indication: POST COITAL CONTRACEPTION
     Dates: start: 20161217, end: 20161217

REACTIONS (1)
  - Menstruation delayed [Not Recovered/Not Resolved]

NARRATIVE: CASE EVENT DATE: 20161218
